FAERS Safety Report 8138424-1 (Version None)
Quarter: 2012Q1

REPORT INFORMATION
  Report Type: 
  Country: None (occurrence: None)
  Receive Date: 20120215
  Receipt Date: 20120203
  Transmission Date: 20120608
  Serious: Yes (Other)
  Sender: FDA-Public Use
  Company Number: US-SANOFI-AVENTIS-2012SA007925

PATIENT
  Sex: Female

DRUGS (6)
  1. RANITIDINE [Suspect]
  2. ATORVASTATIN [Concomitant]
  3. SINGULAIR [Concomitant]
  4. LIPITOR [Suspect]
  5. PLAVIX [Suspect]
  6. METOCLOPRAMIDE [Suspect]

REACTIONS (2)
  - CROHN'S DISEASE [None]
  - MYOCARDIAL INFARCTION [None]
